FAERS Safety Report 7649822-4 (Version None)
Quarter: 2011Q3

REPORT INFORMATION
  Report Type: 
  Country: None (occurrence: None)
  Receive Date: 20110727
  Receipt Date: 20110721
  Transmission Date: 20111222
  Serious: Yes (Death, Hospitalization)
  Sender: FDA-Public Use
  Company Number: 2009-191191-NL

PATIENT
  Age: 23 Year
  Sex: Female
  Weight: 119.7496 kg

DRUGS (2)
  1. NUVARING [Suspect]
     Indication: CONTRACEPTION
     Dosage: 1 DF
     Dates: start: 20070529, end: 20080701
  2. NIACIN [Concomitant]

REACTIONS (23)
  - PULMONARY EMBOLISM [None]
  - VISION BLURRED [None]
  - MUSCULOSKELETAL STIFFNESS [None]
  - CYANOSIS [None]
  - ATRIAL FIBRILLATION [None]
  - HYPOXIA [None]
  - COMA SCALE ABNORMAL [None]
  - AMENORRHOEA [None]
  - VOMITING [None]
  - PUPIL FIXED [None]
  - SINUS TACHYCARDIA [None]
  - CARDIO-RESPIRATORY ARREST [None]
  - DEEP VEIN THROMBOSIS [None]
  - NAUSEA [None]
  - CHEST PAIN [None]
  - MEDIASTINAL DISORDER [None]
  - RESPIRATORY DISTRESS [None]
  - LUNG INFILTRATION [None]
  - ATRIAL TACHYCARDIA [None]
  - LETHARGY [None]
  - DYSLIPIDAEMIA [None]
  - HEADACHE [None]
  - MUSCLE SPASMS [None]
